FAERS Safety Report 10298893 (Version 2)
Quarter: 2014Q3

REPORT INFORMATION
  Report Type: Spontaneous
  Country: US (occurrence: US)
  Receive Date: 20140711
  Receipt Date: 20140808
  Transmission Date: 20150326
  Serious: Yes (Hospitalization)
  Sender: FDA-Public Use
  Company Number: US-ACTAVIS-2014-14784

PATIENT
  Age: 65 Year
  Sex: Female
  Weight: 83 kg

DRUGS (16)
  1. MUCINEX [Concomitant]
     Active Substance: GUAIFENESIN
     Indication: CHRONIC OBSTRUCTIVE PULMONARY DISEASE
     Dosage: 1200 MG, PRN
     Route: 048
     Dates: start: 200912
  2. BABY ASPIRIN [Concomitant]
     Active Substance: ASPIRIN
     Indication: CARDIOVASCULAR EVENT PROPHYLAXIS
     Dosage: 81 MG, DAILY
     Route: 048
     Dates: start: 2005
  3. CALCIUM CITRATE [Concomitant]
     Active Substance: CALCIUM CITRATE
     Indication: SUPPLEMENTATION THERAPY
     Dosage: UNK, UNKNOWN
     Route: 048
  4. IBUPROFEN. [Concomitant]
     Active Substance: IBUPROFEN
     Indication: BACK PAIN
  5. BENADRYL [Concomitant]
     Active Substance: DIPHENHYDRAMINE HYDROCHLORIDE
     Indication: SEASONAL ALLERGY
     Dosage: 25 MG, PRN
     Route: 048
     Dates: start: 201203
  6. VITAMIN D [Concomitant]
     Active Substance: CHOLECALCIFEROL
     Indication: VITAMIN D DEFICIENCY
     Dosage: UNK, UNKNOWN
     Route: 048
  7. ROBAXIN [Concomitant]
     Active Substance: METHOCARBAMOL
     Indication: RHEUMATOID ARTHRITIS
     Dosage: 500 MG, BID
     Route: 048
     Dates: start: 200912
  8. HYDROCHLOROTHIAZIDE (AELLC) [Suspect]
     Active Substance: HYDROCHLOROTHIAZIDE
     Dosage: 25 MG, DAILY
     Route: 048
     Dates: start: 20140530
  9. IBUPROFEN. [Concomitant]
     Active Substance: IBUPROFEN
     Indication: RHEUMATOID ARTHRITIS
     Dosage: 600 MG, PRN
     Route: 048
     Dates: start: 200912
  10. PRAVASTATIN [Concomitant]
     Active Substance: PRAVASTATIN\PRAVASTATIN SODIUM
     Indication: HYPERCHOLESTEROLAEMIA
     Dosage: 40 MG, DAILY
     Route: 048
     Dates: start: 2010
  11. ULTRAM [Concomitant]
     Active Substance: TRAMADOL HYDROCHLORIDE
     Indication: RHEUMATOID ARTHRITIS
     Dosage: 50 MG, PRN
     Route: 048
     Dates: start: 201101
  12. ULTRAM [Concomitant]
     Active Substance: TRAMADOL HYDROCHLORIDE
     Indication: BACK PAIN
  13. HYDROCHLOROTHIAZIDE (AELLC) [Suspect]
     Active Substance: HYDROCHLOROTHIAZIDE
     Indication: FLUID RETENTION
     Dosage: 25 MG, DAILY
     Route: 048
     Dates: start: 20130404, end: 20140523
  14. MIRALAX [Concomitant]
     Active Substance: POLYETHYLENE GLYCOL 3350
     Indication: CONSTIPATION
     Dosage: 17 G, PRN
     Route: 048
     Dates: start: 20131021
  15. MULTIVITAMIN [Concomitant]
     Active Substance: VITAMINS
     Indication: SUPPLEMENTATION THERAPY
     Dosage: 1 DF, DAILY
     Route: 048
     Dates: start: 1990
  16. PROBIOTIC [Concomitant]
     Active Substance: PROBIOTICS NOS
     Indication: SUPPLEMENTATION THERAPY
     Dosage: 1 DF, PRN
     Route: 048
     Dates: start: 20131021

REACTIONS (2)
  - Hypokalaemia [Recovering/Resolving]
  - Abscess intestinal [Recovering/Resolving]

NARRATIVE: CASE EVENT DATE: 20140423
